FAERS Safety Report 19582209 (Version 1)
Quarter: 2021Q3

REPORT INFORMATION
  Report Type: Spontaneous
  Country: US (occurrence: US)
  Receive Date: 20210719
  Receipt Date: 20210719
  Transmission Date: 20211014
  Serious: No
  Sender: FDA-Public Use
  Company Number: US-GALDERMA-US2021012721

PATIENT

DRUGS (6)
  1. PROACTIV MD DAILY OIL CONTROL SPF 30 [Suspect]
     Active Substance: AVOBENZONE\OCTISALATE\OCTOCRYLENE
     Indication: ACNE
     Dosage: 1 DOSAGE FORM, QD, CUTANEOUS SOLUTION
     Route: 061
     Dates: start: 202011, end: 20210413
  2. PROACTIV MD ADAPALENE ACNE TREATMENT [Suspect]
     Active Substance: ADAPALENE
     Indication: ACNE
     Dosage: 1 DOSAGE FORM, QD
     Route: 061
     Dates: start: 202011, end: 20210413
  3. PROACTIV MD BALANCING TONER [Concomitant]
     Active Substance: COSMETICS
     Indication: ACNE
     Dosage: 1 DOSAGE FORM, BID
     Route: 061
     Dates: start: 202011, end: 20210413
  4. PROACTIV MD ULTRA GENTLE CLEANSER [Concomitant]
     Indication: ACNE
     Dosage: 2 DOSAGE FORM, BID
     Route: 061
     Dates: start: 202011, end: 20210413
  5. PROACTIV REDNESS RELIEF SERUM [Concomitant]
     Indication: ACNE
     Dosage: 1 DOSAGE FORM, BID
     Route: 061
     Dates: start: 202011, end: 20210413
  6. PROACTIV DEEP CLEANSING WASH [Concomitant]
     Active Substance: SALICYLIC ACID
     Indication: ACNE
     Dosage: 1 DOSAGE FORM, BID
     Route: 061
     Dates: start: 202011, end: 20210413

REACTIONS (1)
  - Acne [Recovering/Resolving]

NARRATIVE: CASE EVENT DATE: 202101
